FAERS Safety Report 11653071 (Version 4)
Quarter: 2015Q4

REPORT INFORMATION
  Report Type: Spontaneous
  Country: JP (occurrence: JP)
  Receive Date: 20151022
  Receipt Date: 20151028
  Transmission Date: 20160304
  Serious: Yes (Death)
  Sender: FDA-Public Use
  Company Number: PHHY2015JP132985

PATIENT
  Sex: Female

DRUGS (1)
  1. ARZERRA [Suspect]
     Active Substance: OFATUMUMAB
     Indication: CHRONIC LYMPHOCYTIC LEUKAEMIA
     Dosage: 2000 MG, QD
     Route: 041
     Dates: start: 20141015, end: 201410

REACTIONS (2)
  - Malignant neoplasm progression [Fatal]
  - Chronic lymphocytic leukaemia [Fatal]
